FAERS Safety Report 12348632 (Version 2)
Quarter: 2016Q2

REPORT INFORMATION
  Report Type: Spontaneous
  Country: US (occurrence: US)
  Receive Date: 20160509
  Receipt Date: 20160527
  Transmission Date: 20160815
  Serious: No
  Sender: FDA-Public Use
  Company Number: US-MDT-ADR-2016-00831

PATIENT
  Age: 63 Year
  Sex: Female

DRUGS (3)
  1. LIORESAL [Suspect]
     Active Substance: BACLOFEN
     Route: 037
  2. LIORESAL [Suspect]
     Active Substance: BACLOFEN
     Route: 037
  3. VALIUM [Suspect]
     Active Substance: DIAZEPAM
     Route: 048

REACTIONS (1)
  - Post-traumatic stress disorder [Recovered/Resolved]
